FAERS Safety Report 6383384-7 (Version None)
Quarter: 2009Q4

REPORT INFORMATION
  Report Type: 
  Country: None (occurrence: None)
  Receive Date: 20091001
  Receipt Date: 20071024
  Transmission Date: 20100525
  Serious: Yes (Death, Other)
  Sender: FDA-Public Use
  Company Number: US-ASTRAZENECA-2007UW19004

PATIENT
  Age: 45 Year
  Sex: Male
  Weight: 127 kg

DRUGS (26)
  1. SEROQUEL [Suspect]
     Indication: SLEEP DISORDER
     Route: 048
     Dates: start: 19991115, end: 20060415
  2. SEROQUEL [Suspect]
     Dosage: 100-500 MG
     Route: 048
     Dates: start: 20030212, end: 20060101
  3. SEROQUEL [Suspect]
     Dosage: 100-500 MG
     Route: 048
  4. ACTOS [Concomitant]
     Dates: start: 20061207
  5. ATENOLOL [Concomitant]
     Dates: start: 20010427
  6. ATENOLOL [Concomitant]
     Route: 048
     Dates: start: 20020121
  7. VIAGRA [Concomitant]
     Dates: start: 20051202
  8. BEXTRA [Concomitant]
     Dates: start: 20040924
  9. TRICOR [Concomitant]
     Dates: start: 20040622
  10. METFORMIN HCL [Concomitant]
     Dates: start: 20030523
  11. ALLOPURINOL [Concomitant]
  12. AMARYL [Concomitant]
     Dates: start: 20030910
  13. TRIAMTERENE AND HYDROCHLOROTHIAZIDE [Concomitant]
     Dosage: 375/25 MG THREE TIMES A DAY
     Dates: start: 20020121
  14. TRIAMTERENE AND HYDROCHLOROTHIAZIDE [Concomitant]
     Dates: start: 20030910
  15. INDOCIN [Concomitant]
     Dates: start: 20030120
  16. IBUPROFEN [Concomitant]
     Dates: start: 20030717
  17. AMBIEN [Concomitant]
     Indication: SLEEP DISORDER
     Route: 048
     Dates: start: 20011231
  18. AMBIEN [Concomitant]
     Dates: start: 20030717
  19. ALDOMET [Concomitant]
     Dates: start: 20011112
  20. NITROSTAT [Concomitant]
     Dates: start: 20040421
  21. PROLAXIN DECONATE [Concomitant]
     Route: 048
     Dates: start: 20000713
  22. PROLAXIN DECONATE [Concomitant]
     Dates: start: 20030523
  23. WELLBUTRIN [Concomitant]
  24. HALDOL [Concomitant]
  25. RISPERDAL [Concomitant]
  26. DALMANE [Concomitant]
     Route: 048
     Dates: start: 19990222

REACTIONS (26)
  - ACUTE MYOCARDIAL INFARCTION [None]
  - ACUTE PSYCHOSIS [None]
  - ALANINE AMINOTRANSFERASE INCREASED [None]
  - BACK PAIN [None]
  - BLOOD CHLORIDE DECREASED [None]
  - BLOOD CREATINE PHOSPHOKINASE INCREASED [None]
  - BLOOD POTASSIUM INCREASED [None]
  - BLOOD PRESSURE INCREASED [None]
  - BLOOD SODIUM DECREASED [None]
  - BLOOD TRIGLYCERIDES INCREASED [None]
  - CARDIO-RESPIRATORY ARREST [None]
  - CLAUSTROPHOBIA [None]
  - COLONIC POLYP [None]
  - DELUSION [None]
  - DELUSION OF GRANDEUR [None]
  - DELUSIONAL DISORDER, EROTOMANIC TYPE [None]
  - DIABETES MELLITUS [None]
  - EYE SWELLING [None]
  - HAEMORRHOIDS [None]
  - INITIAL INSOMNIA [None]
  - LOCALISED INFECTION [None]
  - MYALGIA [None]
  - PARONYCHIA [None]
  - PRURITUS [None]
  - RASH [None]
  - TARDIVE DYSKINESIA [None]
